FAERS Safety Report 9134385 (Version 3)
Quarter: 2013Q2

REPORT INFORMATION
  Report Type: Spontaneous
  Country: US (occurrence: US)
  Receive Date: 20130304
  Receipt Date: 20130508
  Transmission Date: 20140414
  Serious: No
  Sender: FDA-Public Use
  Company Number: US-TEVA-389295USA

PATIENT
  Sex: Male

DRUGS (4)
  1. NUVIGIL [Suspect]
     Indication: CIRCADIAN RHYTHM SLEEP DISORDER
     Route: 048
     Dates: start: 20130214, end: 20130228
  2. SINGULAIR [Concomitant]
  3. COMBIVENT [Concomitant]
  4. PRISTIQ [Concomitant]

REACTIONS (1)
  - Chromaturia [Unknown]
